FAERS Safety Report 5889981-7 (Version None)
Quarter: 2008Q3

REPORT INFORMATION
  Report Type: 
  Country: None (occurrence: None)
  Receive Date: 20080919
  Receipt Date: 20080908
  Transmission Date: 20090109
  Serious: Yes (Hospitalization, Other)
  Sender: FDA-Public Use
  Company Number: BE-PFIZER INC-2008075308

PATIENT
  Age: 56 Year
  Sex: Female
  Weight: 122 kg

DRUGS (4)
  1. PIROXICAM [Suspect]
     Indication: ANALGESIC THERAPY
     Dosage: DAILY DOSE:20MG
  2. METFORMIN HCL [Interacting]
     Indication: TYPE 2 DIABETES MELLITUS
  3. GALENIC /HYDROCHLOROTHIAZIDE/VALSARTAN/ [Interacting]
     Indication: HYPERTENSION
     Dosage: TEXT:160MG/12.5MG
  4. FUROSEMIDE [Interacting]
     Indication: HYPERTENSION
     Dosage: DAILY DOSE:40MG

REACTIONS (2)
  - DRUG INTERACTION [None]
  - LACTIC ACIDOSIS [None]
